FAERS Safety Report 6914933-5 (Version None)
Quarter: 2010Q3

REPORT INFORMATION
  Report Type: 
  Country: None (occurrence: None)
  Receive Date: 20100809
  Receipt Date: 20100730
  Transmission Date: 20110219
  Serious: Yes (Other)
  Sender: FDA-Public Use
  Company Number: PHHY2010FR43341

PATIENT
  Sex: Male

DRUGS (14)
  1. CERTICAN [Suspect]
     Indication: HEART TRANSPLANT
     Dosage: 3 MG, DAILY
     Dates: start: 20100201
  2. CERTICAN [Suspect]
     Indication: IMMUNOSUPPRESSION
     Dosage: 1.5 MG,  BID
     Dates: start: 20100201, end: 20100506
  3. NOVONORM [Concomitant]
     Dosage: 5 MG , DAILY
  4. NEORAL [Concomitant]
     Dosage: 30 MG, BID, DAILY
  5. CORTANCYL [Concomitant]
     Dosage: 4 MG, DAILY
  6. HYDROCORTISONE [Concomitant]
     Dosage: 20 MG, DAILY
  7. KARDEGIC [Concomitant]
     Dosage: 160 MG, 1 DF DAILY
  8. PERINDOPRIL ERBUMINE [Concomitant]
     Dosage: 5 MG, 0.5 DF , DAILY
  9. LERCAN [Concomitant]
     Dosage: 10 MG, DAILY
     Dates: end: 20100310
  10. UVEDOSE [Concomitant]
     Dosage: 100 000 IU EVERY 3 MONTHS
  11. BACTRIM [Concomitant]
     Dosage: 1 DF DAILY
  12. CALCIUM FOLINATE [Concomitant]
     Dosage: 25 MG, DAILY
  13. ALLOPURINOL [Concomitant]
     Dosage: 200 MG, 1DF, DAILY
  14. EXJADE [Concomitant]
     Dosage: 1 DF DAILY

REACTIONS (3)
  - BLOOD GLUCOSE INCREASED [None]
  - OEDEMA PERIPHERAL [None]
  - SKIN ULCER [None]
